FAERS Safety Report 7912492-1 (Version None)
Quarter: 2011Q4

REPORT INFORMATION
  Report Type: 
  Country: None (occurrence: None)
  Receive Date: 20111114
  Receipt Date: 20111108
  Transmission Date: 20120403
  Serious: No
  Sender: FDA-Public Use
  Company Number: US-PFIZER INC-US-WYE-H15464910

PATIENT
  Sex: Female
  Weight: 56.7 kg

DRUGS (18)
  1. ATENOLOL [Concomitant]
     Dosage: 25 MG, 1X/DAY
  2. SYNTHROID [Concomitant]
     Indication: BASEDOW'S DISEASE
     Dosage: 150 MG ON ONE DAY AND THEN 175 MG ANOTHER DAY DAILY
     Route: 048
  3. TEMAZEPAM [Concomitant]
     Dosage: 30 MG, 1X/DAY
     Route: 048
  4. ASCORBIC ACID [Concomitant]
     Indication: DYSPEPSIA
     Dosage: UNK
  5. CARAFATE [Concomitant]
     Dosage: UNK
  6. DEPAKOTE [Concomitant]
     Dosage: UNK
  7. WELLBUTRIN SR [Concomitant]
     Dosage: 150 MG, 1X/DAY
     Route: 048
  8. ESTRATEST [Concomitant]
     Dosage: UNK
     Route: 048
  9. PRILOSEC [Concomitant]
     Indication: DYSPEPSIA
     Dosage: 20 MG, 1X/DAY
     Route: 048
  10. VITAMIN B COMPLEX CAP [Concomitant]
     Dosage: UNK
  11. BUSPAR [Concomitant]
     Dosage: 5 MG, 2X/DAY
  12. HYOSCYAMINE [Concomitant]
     Dosage: 0.25 MG, EVERY 4 HRS
  13. PREMARIN [Suspect]
     Indication: VULVOVAGINAL DRYNESS
     Dosage: 0.625 MG, 2X/WEEK
     Route: 067
     Dates: start: 20050101
  14. ACETAMINOPHEN [Concomitant]
     Dosage: UNK
  15. PRIMIDONE [Concomitant]
     Dosage: UNK
  16. PHENERGAN [Concomitant]
     Dosage: UNK
  17. CALCIUM WITH VITAMIN D [Concomitant]
     Indication: ARTHROPATHY
     Dosage: UNK
  18. VITAMIN D [Concomitant]
     Dosage: 400 IU, UNK

REACTIONS (1)
  - VAGINAL INFECTION [None]
